FAERS Safety Report 6342754-3 (Version None)
Quarter: 2009Q3

REPORT INFORMATION
  Report Type: 
  Country: None (occurrence: None)
  Receive Date: 20090903
  Receipt Date: 20090824
  Transmission Date: 20100115
  Serious: Yes (Other)
  Sender: FDA-Public Use
  Company Number: 366999

PATIENT
  Age: 55 Year
  Sex: Female

DRUGS (6)
  1. VINCRISTINE [Suspect]
     Indication: DIFFUSE LARGE B-CELL LYMPHOMA
     Dosage: 1.5 MG/M2, UNKNOWN, NOT REPORTED
  2. CYCLOPHOSPHAMIDE [Concomitant]
  3. DOXORUBICIN HCL [Concomitant]
  4. PREDNISOLONE [Concomitant]
  5. RITUXIMAB [Concomitant]
  6. METHOTREXATE [Concomitant]

REACTIONS (4)
  - ALLOGENIC BONE MARROW TRANSPLANTATION THERAPY [None]
  - BONE MARROW DISORDER [None]
  - NEUROPATHY PERIPHERAL [None]
  - SEPSIS [None]
